FAERS Safety Report 5448377-2 (Version None)
Quarter: 2007Q3

REPORT INFORMATION
  Report Type: 
  Country: None (occurrence: None)
  Receive Date: 20070911
  Receipt Date: 20070906
  Transmission Date: 20080115
  Serious: Yes (Other)
  Sender: FDA-Public Use
  Company Number: AUWYE728425MAY07

PATIENT

DRUGS (1)
  1. EFFEXOR XR [Suspect]
     Dosage: UNKNOWN
     Route: 048

REACTIONS (3)
  - FEELING HOT [None]
  - PARAESTHESIA [None]
  - PARKINSONISM [None]
